FAERS Safety Report 9839992 (Version 1)
Quarter: 2014Q1

REPORT INFORMATION
  Report Type: Spontaneous
  Country: US (occurrence: None)
  Receive Date: 20140117
  Receipt Date: 20140117
  Transmission Date: 20141002
  Serious: Yes (Hospitalization)
  Sender: FDA-Public Use
  Company Number: None

PATIENT
  Age: 69 Year
  Sex: Male
  Weight: 73.1 kg

DRUGS (4)
  1. EVEROLIMUS [Suspect]
     Dates: end: 20130320
  2. ALBUTEROL [Concomitant]
  3. DIOVAN [Concomitant]
  4. MORPHINE SULFATE [Concomitant]

REACTIONS (13)
  - Stomatitis [None]
  - Diarrhoea [None]
  - Pain [None]
  - Lung disorder [None]
  - Lethargy [None]
  - Confusional state [None]
  - Dyspnoea [None]
  - Cough [None]
  - Hypotension [None]
  - Dyspnoea [None]
  - Hypoxia [None]
  - Renal failure acute [None]
  - Septic shock [None]
